FAERS Safety Report 10272449 (Version 1)
Quarter: 2014Q1

REPORT INFORMATION
  Report Type: Spontaneous
  Country: US (occurrence: None)
  Receive Date: 20140306
  Receipt Date: 20140306
  Transmission Date: 20141002
  Serious: Yes (Other)
  Sender: FDA-Public Use
  Company Number: 163-21880-13042830

PATIENT
  Age: 79 Year
  Sex: Female
  Weight: 57.61 kg

DRUGS (10)
  1. REVLIMID (LENALIDOMIDE) (25 MILLIGRAM, CAPSULES) [Suspect]
     Indication: PLASMA CELL MYELOMA
     Dosage: 25 MG , 1 IN 1D, PO 09/ 2012 - UNKNOWN THERAPY DATES
     Route: 048
     Dates: start: 201209
  2. VELCADE (BORTEZOMIB) [Concomitant]
  3. AVAPRO (IRBESARTAN) [Concomitant]
  4. ACYCLOVIR [Concomitant]
  5. ALLOPURINOL [Concomitant]
  6. ADULT ASPIRIN [Concomitant]
  7. PHOSPHA 250 NEUTRAL [Concomitant]
  8. VITAMIN C (ASCORBIC ACID)_ [Concomitant]
  9. IRON [Concomitant]
  10. DEXAMETHASONE [Concomitant]

REACTIONS (5)
  - Energy increased [None]
  - Head discomfort [None]
  - Headache [None]
  - Decreased activity [None]
  - Platelet disorder [None]
